FAERS Safety Report 6273857-X (Version None)
Quarter: 2009Q3

REPORT INFORMATION
  Report Type: 
  Country: None (occurrence: None)
  Receive Date: 20090716
  Receipt Date: 20090707
  Transmission Date: 20100115
  Serious: No
  Sender: FDA-Public Use
  Company Number: 6045664

PATIENT
  Age: 1 Day
  Sex: Female

DRUGS (3)
  1. LEVOTHYROXINE SODIUM [Suspect]
     Indication: DRUG EXPOSURE DURING PREGNANCY
     Dosage: TRANSPLACENTAL; (MOTHER TREATED SINCE 2004)
     Route: 064
     Dates: end: 20070706
  2. NEO-MERCAZOLE TAB [Suspect]
     Indication: DRUG EXPOSURE DURING PREGNANCY
     Dosage: 5 MG  (5 MG, 1 D)   TRANSPLACENTAL
     Route: 064
     Dates: start: 20070524, end: 20070706
  3. ASPEGIC 1000 [Suspect]
     Indication: DRUG EXPOSURE DURING PREGNANCY
     Dosage: TRANSPLACENTAL
     Route: 064
     Dates: end: 20070706

REACTIONS (8)
  - CAESAREAN SECTION [None]
  - CYTOLYTIC HEPATITIS [None]
  - GOITRE [None]
  - HYPERAMMONAEMIA [None]
  - HYPOTHYROIDISM [None]
  - MATERNAL DRUGS AFFECTING FOETUS [None]
  - NEONATAL CHOLESTASIS [None]
  - SERUM FERRITIN INCREASED [None]
